FAERS Safety Report 12705707 (Version 1)
Quarter: 2016Q3

REPORT INFORMATION
  Report Type: Other
  Country: CA (occurrence: CA)
  Receive Date: 20160901
  Receipt Date: 20160901
  Transmission Date: 20161109
  Serious: Yes (Life-Threatening, Hospitalization, Other)
  Sender: FDA-Public Use
  Company Number: CA-APOTEX-2016AP010665

PATIENT
  Age: 64 Year
  Sex: Male

DRUGS (1)
  1. APO-DILTIAZ INJECTABLE [Suspect]
     Active Substance: DILTIAZEM HYDROCHLORIDE
     Indication: INTENTIONAL OVERDOSE
     Route: 065

REACTIONS (6)
  - Generalised tonic-clonic seizure [Unknown]
  - Toxicity to various agents [Unknown]
  - Tetany [Unknown]
  - Intentional overdose [Unknown]
  - Shock [Unknown]
  - Lactic acidosis [Unknown]
